FAERS Safety Report 8891134 (Version 1)
Quarter: 2012Q4

REPORT INFORMATION
  Report Type: 
  Country: CH (occurrence: CH)
  Receive Date: 20121107
  Receipt Date: 20121107
  Transmission Date: 20130627
  Serious: Yes (Hospitalization, Other)
  Sender: FDA-Public Use
  Company Number: CH-ASTRAZENECA-2012SE84150

PATIENT
  Age: 77 Year
  Sex: Male

DRUGS (13)
  1. SEROQUEL [Suspect]
     Route: 048
     Dates: start: 20120212, end: 20120224
  2. NORTRIPTYLINE HYDROCHLORIDE [Suspect]
     Route: 048
     Dates: start: 2003, end: 20120224
  3. NORTRIPTYLINE HYDROCHLORIDE [Suspect]
     Route: 048
     Dates: start: 20120225
  4. LITHIOFOR [Suspect]
     Route: 048
     Dates: end: 20120224
  5. LITHIOFOR [Suspect]
     Route: 048
     Dates: start: 20120225, end: 20120227
  6. LITHIOFOR [Suspect]
     Route: 048
     Dates: start: 20120228
  7. INDERAL [Concomitant]
     Route: 048
  8. SERESTA [Concomitant]
     Route: 048
  9. DUSPATALIN RETARD [Concomitant]
     Route: 048
     Dates: start: 20120212, end: 20120224
  10. HALDOL [Concomitant]
     Route: 048
     Dates: start: 20120211, end: 20120224
  11. HALDOL [Concomitant]
     Route: 048
     Dates: start: 20120225, end: 20120227
  12. DAFALGAN [Concomitant]
     Route: 048
     Dates: start: 20120211
  13. MADOPAR [Concomitant]

REACTIONS (2)
  - Delirium [Recovered/Resolved]
  - Neurotoxicity [Unknown]
